FAERS Safety Report 15981067 (Version 1)
Quarter: 2019Q1

REPORT INFORMATION
  Report Type: Spontaneous
  Country: US (occurrence: US)
  Receive Date: 20190219
  Receipt Date: 20190219
  Transmission Date: 20190418
  Serious: Yes (Death, Other)
  Sender: FDA-Public Use
  Company Number: US-009507513-1902USA004934

PATIENT
  Sex: Male

DRUGS (1)
  1. BELSOMRA [Suspect]
     Active Substance: SUVOREXANT
     Indication: INSOMNIA
     Dosage: UNSPECIFIED SAMPLES OF 10 MG AND 20 MG
     Route: 048

REACTIONS (2)
  - Completed suicide [Fatal]
  - Drug ineffective [Unknown]

NARRATIVE: CASE EVENT DATE: 201802
